FAERS Safety Report 7670666 (Version 9)
Quarter: 2012Q4

REPORT INFORMATION
  Report Type: 
  Country: US (occurrence: US)
  Receive Date: 20101116
  Receipt Date: 20120828
  Transmission Date: 20130627
  Serious: Yes (Life-Threatening, Hospitalization, Other)
  Sender: FDA-Public Use
  Company Number: US-ACTELION-A-NJ2010-41396

PATIENT
  Age: 79 Year
  Sex: Female

DRUGS (5)
  1. TRACLEER [Suspect]
     Indication: PULMONARY ARTERIAL HYPERTENSION
     Dosage: UNK
     Route: 048
     Dates: start: 20040605
  2. COUMADIN [Suspect]
  3. LOVENOX [Concomitant]
  4. COZAAR [Concomitant]
  5. ALDACTONE [Concomitant]

REACTIONS (14)
  - Haemorrhage [Recovered/Resolved]
  - Toxicity to various agents [Unknown]
  - Anaemia [Recovering/Resolving]
  - Transfusion [Recovering/Resolving]
  - Asthenia [Recovering/Resolving]
  - Malaise [Recovering/Resolving]
  - Renal disorder [Not Recovered/Not Resolved]
  - Mental status changes [Not Recovered/Not Resolved]
  - Osteoarthritis [Not Recovered/Not Resolved]
  - Neck pain [Not Recovered/Not Resolved]
  - Renal failure [Recovering/Resolving]
  - Nausea [Not Recovered/Not Resolved]
  - International normalised ratio increased [Not Recovered/Not Resolved]
  - Dehydration [Recovered/Resolved]
